FAERS Safety Report 11740190 (Version 1)
Quarter: 2015Q4

REPORT INFORMATION
  Report Type: Report from Study
  Country: BR (occurrence: BR)
  Receive Date: 20151113
  Receipt Date: 20151113
  Transmission Date: 20160304
  Serious: Yes (Other)
  Sender: FDA-Public Use
  Company Number: BR-ABBVIE-15K-020-1497916-00

PATIENT
  Age: 54 Year
  Sex: Female
  Weight: 120 kg

DRUGS (8)
  1. LOSARTAN. [Concomitant]
     Active Substance: LOSARTAN
     Indication: HYPERTENSION
     Route: 048
  2. HUMIRA [Suspect]
     Active Substance: ADALIMUMAB
     Indication: RHEUMATOID ARTHRITIS
     Route: 058
     Dates: start: 20150611
  3. GLIFAGE [Suspect]
     Active Substance: METFORMIN HYDROCHLORIDE
     Indication: DIABETES MELLITUS
     Route: 048
     Dates: start: 201509, end: 201510
  4. INDAPEN [Concomitant]
     Active Substance: INDAPAMIDE
     Indication: HYPERTENSION
     Route: 048
     Dates: start: 201508
  5. FLUOXETINE [Concomitant]
     Active Substance: FLUOXETINE HYDROCHLORIDE
     Indication: NERVOUSNESS
     Route: 048
  6. CODEIN [Concomitant]
     Active Substance: CODEINE
     Indication: PAIN
     Route: 048
  7. METHOTREXATE [Concomitant]
     Active Substance: METHOTREXATE
     Indication: ARTHRITIS
     Route: 048
  8. SERENATA [Concomitant]
     Active Substance: SERTRALINE HYDROCHLORIDE
     Indication: NERVOUSNESS
     Route: 048

REACTIONS (14)
  - Memory impairment [Not Recovered/Not Resolved]
  - Learning disorder [Unknown]
  - Somnolence [Unknown]
  - Back pain [Recovering/Resolving]
  - Anaemia [Unknown]
  - Fatigue [Unknown]
  - Onychoclasis [Not Recovered/Not Resolved]
  - Daydreaming [Unknown]
  - Pain [Unknown]
  - Dry throat [Unknown]
  - Cough [Unknown]
  - Mobility decreased [Unknown]
  - Spinal osteoarthritis [Unknown]
  - Gastrointestinal disorder [Unknown]

NARRATIVE: CASE EVENT DATE: 2015
